FAERS Safety Report 8994403 (Version 1)
Quarter: 2012Q4

REPORT INFORMATION
  Report Type: Spontaneous
  Country: US (occurrence: None)
  Receive Date: 20121227
  Receipt Date: 20121227
  Transmission Date: 20130627
  Serious: Yes (Other)
  Sender: FDA-Public Use
  Company Number: None

PATIENT
  Sex: Female
  Weight: 77.57 kg

DRUGS (1)
  1. GOLYTELY [Suspect]
     Indication: PREOPERATIVE CARE
     Dosage: 8oz from 1 gallan solution every 10 minutes po
     Route: 048
     Dates: start: 20121129, end: 20121129

REACTIONS (4)
  - Rhinorrhoea [None]
  - Dyspnoea [None]
  - Pharyngeal oedema [None]
  - Drug hypersensitivity [None]
